FAERS Safety Report 8612998-6 (Version None)
Quarter: 2012Q3

REPORT INFORMATION
  Report Type: 
  Country: None (occurrence: None)
  Receive Date: 20120822
  Receipt Date: 20120816
  Transmission Date: 20120928
  Serious: Yes (Other)
  Sender: FDA-Public Use
  Company Number: JP-PFIZER INC-2012200172

PATIENT
  Age: 38 Year
  Sex: Female

DRUGS (1)
  1. PREMARIN [Suspect]
     Route: 048

REACTIONS (1)
  - CONJUNCTIVAL HAEMORRHAGE [None]
